FAERS Safety Report 15864195 (Version 6)
Quarter: 2020Q2

REPORT INFORMATION
  Report Type: Spontaneous
  Country: IT (occurrence: IT)
  Receive Date: 20190124
  Receipt Date: 20200417
  Transmission Date: 20200713
  Serious: Yes (Life-Threatening, Hospitalization, Other)
  Sender: FDA-Public Use
  Company Number: IT-JNJFOC-20190129438

PATIENT
  Age: 70 Year
  Sex: Female

DRUGS (5)
  1. PREDNISONE. [Suspect]
     Active Substance: PREDNISONE
     Indication: NON-HODGKIN^S LYMPHOMA
     Dosage: CYCLICAL FOR 5 DAYS
     Route: 048
  2. VINCRISTINE [Suspect]
     Active Substance: VINCRISTINE
     Indication: NON-HODGKIN^S LYMPHOMA
     Dosage: CYCLICAL FOR 6 DAYS
     Route: 065
  3. DOXORUBICIN HYDROCHLORIDE. [Suspect]
     Active Substance: DOXORUBICIN HYDROCHLORIDE
     Indication: NON-HODGKIN^S LYMPHOMA
     Dosage: CYCLICAL, CUMULATIVE DOSE OF 500 MG/M2
     Route: 065
  4. CYCLOPHOSPHAMIDE. [Suspect]
     Active Substance: CYCLOPHOSPHAMIDE
     Indication: NON-HODGKIN^S LYMPHOMA
     Dosage: CYCLICAL FOR 6 DAYS
     Route: 065
  5. IMATINIB MESYLATE. [Suspect]
     Active Substance: IMATINIB MESYLATE
     Indication: CHRONIC MYELOID LEUKAEMIA
     Route: 048

REACTIONS (13)
  - Pulmonary arterial pressure increased [Recovered/Resolved]
  - Product use in unapproved indication [Unknown]
  - Acute pulmonary oedema [Unknown]
  - Bundle branch block left [Recovering/Resolving]
  - Aortic stenosis [Recovering/Resolving]
  - Mitral valve incompetence [Recovering/Resolving]
  - Cardiomyopathy [Recovering/Resolving]
  - Cardiac failure congestive [Unknown]
  - Cardiotoxicity [Recovering/Resolving]
  - Systolic dysfunction [Recovering/Resolving]
  - Left ventricular dysfunction [Recovered/Resolved]
  - Dyspnoea [Recovered/Resolved]
  - Off label use [Unknown]
